FAERS Safety Report 5598872-0 (Version None)
Quarter: 2008Q1

REPORT INFORMATION
  Report Type: 
  Country: None (occurrence: None)
  Receive Date: 20080122
  Receipt Date: 20071105
  Transmission Date: 20080703
  Serious: Yes (Other)
  Sender: FDA-Public Use
  Company Number: HQWYE898030APR07

PATIENT
  Age: 74 Year
  Sex: Female

DRUGS (3)
  1. EUPANTOL [Suspect]
     Indication: ABDOMINAL PAIN UPPER
     Route: 048
     Dates: start: 20070201, end: 20070318
  2. EUPANTOL [Suspect]
     Indication: PELVIC PAIN
  3. VISKALDIX [Concomitant]
     Indication: HYPERTENSION
     Dosage: ^1/2 TABLET DAILY^
     Route: 048

REACTIONS (3)
  - FATIGUE [None]
  - MALAISE [None]
  - RENAL FAILURE ACUTE [None]
